FAERS Safety Report 15210021 (Version 3)
Quarter: 2018Q4

REPORT INFORMATION
  Report Type: Report from Study
  Country: US (occurrence: US)
  Receive Date: 20180727
  Receipt Date: 20181002
  Transmission Date: 20190204
  Serious: Yes (Hospitalization)
  Sender: FDA-Public Use
  Company Number: US-ACTELION-A-NJ2018-168271

PATIENT
  Age: 57 Year
  Sex: Female
  Weight: 56.69 kg

DRUGS (5)
  1. DILTIAZEM. [Concomitant]
     Active Substance: DILTIAZEM
  2. ADEMPAS [Suspect]
     Active Substance: RIOCIGUAT
     Indication: PRODUCT USED FOR UNKNOWN INDICATION
     Route: 065
  3. SILDENAFIL CITRATE. [Concomitant]
     Active Substance: SILDENAFIL CITRATE
  4. VENTAVIS [Concomitant]
     Active Substance: ILOPROST
     Indication: PULMONARY ARTERIAL HYPERTENSION
  5. OPSUMIT [Suspect]
     Active Substance: MACITENTAN
     Indication: PULMONARY ARTERIAL HYPERTENSION
     Dosage: 10 MG, QD
     Route: 048

REACTIONS (10)
  - Hypertension [Unknown]
  - Gastrooesophageal reflux disease [Unknown]
  - Dyspnoea exertional [Unknown]
  - Breath sounds abnormal [Unknown]
  - Oedema peripheral [Recovering/Resolving]
  - Dry mouth [Unknown]
  - Headache [Recovered/Resolved]
  - Dyspepsia [Unknown]
  - Constipation [Unknown]
  - Mouth haemorrhage [Unknown]
